FAERS Safety Report 22249898 (Version 1)
Quarter: 2023Q2

REPORT INFORMATION
  Report Type: Spontaneous
  Country: US (occurrence: None)
  Receive Date: 20230424
  Receipt Date: 20230424
  Transmission Date: 20230722
  Serious: No
  Sender: FDA-Public Use
  Company Number: None

PATIENT
  Age: 7 Year
  Sex: Male
  Weight: 20 kg

DRUGS (1)
  1. GELNIQUE [Suspect]
     Active Substance: OXYBUTYNIN
     Indication: Neurogenic bladder
     Dosage: FREQUENCY : DAILY;?
     Route: 061
     Dates: start: 20220207

REACTIONS (3)
  - Product packaging quantity issue [None]
  - Incorrect dose administered [None]
  - Nonspecific reaction [None]

NARRATIVE: CASE EVENT DATE: 20230421
